FAERS Safety Report 16978092 (Version 1)
Quarter: 2019Q4

REPORT INFORMATION
  Report Type: Spontaneous
  Country: US (occurrence: US)
  Receive Date: 20191031
  Receipt Date: 20191031
  Transmission Date: 20200122
  Serious: No
  Sender: FDA-Public Use
  Company Number: US-KARYOPHARM-2019KPT000679

PATIENT

DRUGS (4)
  1. VARUBI [Concomitant]
     Active Substance: ROLAPITANT
     Indication: NAUSEA
     Dosage: 180 MG, 1X/2 WEEKS
     Route: 048
     Dates: start: 20191002
  2. ZOFRAN [Concomitant]
     Active Substance: ONDANSETRON HYDROCHLORIDE
     Indication: NAUSEA
  3. DEXAMETHASONE. [Concomitant]
     Active Substance: DEXAMETHASONE
     Indication: PRODUCT USED FOR UNKNOWN INDICATION
  4. XPOVIO [Suspect]
     Active Substance: SELINEXOR
     Indication: PLASMA CELL MYELOMA
     Dosage: 60 MG, WEEKLY
     Route: 048
     Dates: start: 20191002

REACTIONS (2)
  - Nausea [Recovered/Resolved]
  - Plasma cell myeloma [Unknown]
